FAERS Safety Report 10978718 (Version 1)
Quarter: 2015Q2

REPORT INFORMATION
  Report Type: Spontaneous
  Country: PH (occurrence: PH)
  Receive Date: 20150402
  Receipt Date: 20150402
  Transmission Date: 20150821
  Serious: Yes (Death, Other)
  Sender: FDA-Public Use
  Company Number: PHHY2015PH035298

PATIENT
  Age: 16 Year
  Sex: Female

DRUGS (4)
  1. ETHAMBUTOL [Suspect]
     Active Substance: ETHAMBUTOL HYDROCHLORIDE
     Indication: LYMPH NODE TUBERCULOSIS
     Route: 065
  2. PYRAZINAMIDE. [Suspect]
     Active Substance: PYRAZINAMIDE
     Indication: LYMPH NODE TUBERCULOSIS
     Route: 065
  3. ISONIAZID. [Suspect]
     Active Substance: ISONIAZID
     Indication: LYMPH NODE TUBERCULOSIS
     Route: 065
  4. RIFAMPICIN [Suspect]
     Active Substance: RIFAMPIN
     Indication: LYMPH NODE TUBERCULOSIS
     Route: 065

REACTIONS (17)
  - Crepitations [Fatal]
  - Dry skin [Unknown]
  - Dyspnoea [Fatal]
  - Rash pruritic [Recovering/Resolving]
  - Transaminases increased [Unknown]
  - Hypotension [Unknown]
  - Respiratory alkalosis [Fatal]
  - Drug reaction with eosinophilia and systemic symptoms [Unknown]
  - Rash erythematous [Recovering/Resolving]
  - Rash maculo-papular [Recovering/Resolving]
  - Influenza like illness [Fatal]
  - Pyrexia [Not Recovered/Not Resolved]
  - Eosinophilia [Unknown]
  - Acute respiratory distress syndrome [Fatal]
  - Lung infiltration [Fatal]
  - Hypoxia [Fatal]
  - Lymphadenopathy [Unknown]
